FAERS Safety Report 4288539-3 (Version None)
Quarter: 2004Q1

REPORT INFORMATION
  Report Type: 
  Country: None (occurrence: None)
  Receive Date: 20040205
  Receipt Date: 20040123
  Transmission Date: 20041129
  Serious: Yes (Life-Threatening)
  Sender: FDA-Public Use
  Company Number: 04H-056-0248797-00

PATIENT
  Age: 55 Year
  Sex: Male
  Weight: 99 kg

DRUGS (5)
  1. ISOFLURANE (FORENE LIQUID FOR INHALATION) (ISOFLURANE) (ISOFLURANE) [Suspect]
     Indication: ANAESTHESIA
     Dosage: INHALATION
     Route: 055
     Dates: start: 20040105, end: 20040105
  2. CLAVULIN [Suspect]
     Dosage: INTRAVENOUS
     Route: 042
     Dates: start: 20040105, end: 20040105
  3. MIDAZOLAM HCL [Suspect]
     Indication: ANAESTHESIA
     Dosage: INTRAVENOUS
     Route: 042
     Dates: start: 20040105, end: 20040105
  4. PROPOFOL [Suspect]
     Indication: ANAESTHESIA
     Dosage: INTRAVENOUS
     Route: 042
     Dates: start: 20040105, end: 20040105
  5. SUFENTANIL [Suspect]
     Indication: ANAESTHESIA
     Dosage: INTRAVENOUS
     Route: 042
     Dates: start: 20040105, end: 20040105

REACTIONS (4)
  - ELECTROCARDIOGRAM ST SEGMENT ELEVATION [None]
  - ERYTHEMA [None]
  - HYPOTENSION [None]
  - HYPOXIA [None]
